FAERS Safety Report 6047682-9 (Version None)
Quarter: 2009Q1

REPORT INFORMATION
  Report Type: 
  Country: None (occurrence: None)
  Receive Date: 20090123
  Receipt Date: 20081215
  Transmission Date: 20090719
  Serious: Yes (Other)
  Sender: FDA-Public Use
  Company Number: BR-JNJFOC-20081204170

PATIENT
  Age: 53 Year
  Sex: Female
  Weight: 70 kg

DRUGS (4)
  1. SIBELIUM [Suspect]
     Indication: LABYRINTHITIS
     Route: 065
  2. STUGERON [Suspect]
     Indication: LABYRINTHITIS
     Route: 065
  3. TYLENOL [Suspect]
  4. TYLENOL [Suspect]
     Indication: DRUG USE FOR UNKNOWN INDICATION

REACTIONS (6)
  - BLOOD GLUCOSE DECREASED [None]
  - BLOOD PRESSURE DECREASED [None]
  - DRUG HYPERSENSITIVITY [None]
  - MUSCULAR WEAKNESS [None]
  - SOMNOLENCE [None]
  - SPEECH DISORDER [None]
